FAERS Safety Report 8851367 (Version 2)
Quarter: 2012Q4

REPORT INFORMATION
  Report Type: 
  Country: US (occurrence: US)
  Receive Date: 20121022
  Receipt Date: 20121114
  Transmission Date: 20130627
  Serious: Yes (Hospitalization, Other)
  Sender: FDA-Public Use
  Company Number: US-AMGEN-USASP2012065890

PATIENT
  Age: 52 Year
  Sex: Male

DRUGS (7)
  1. ENBREL [Suspect]
     Indication: PSORIATIC ARTHROPATHY
     Dosage: 50 mg, qwk
     Dates: start: 2005, end: 201202
  2. ENBREL [Suspect]
     Indication: PSORIASIS
  3. HUMIRA [Concomitant]
     Dosage: 40 mg, UNK
     Dates: start: 2004
  4. FERROUS SULFATE [Concomitant]
     Dosage: 325 mg, UNK
     Route: 048
  5. OMEGA 3                            /01334101/ [Concomitant]
     Dosage: UNK
     Route: 048
  6. SPIRONOLACTON [Concomitant]
     Dosage: 50 UNK, UNK
     Route: 048
  7. METHOTREXATE [Concomitant]

REACTIONS (4)
  - Chronic hepatic failure [Not Recovered/Not Resolved]
  - Hernia [Not Recovered/Not Resolved]
  - Pain in extremity [Not Recovered/Not Resolved]
  - Psoriasis [Not Recovered/Not Resolved]
